FAERS Safety Report 8766644 (Version 1)
Quarter: 2012Q4

REPORT INFORMATION
  Report Type: 
  Country: BR (occurrence: BR)
  Receive Date: 20120904
  Receipt Date: 20120904
  Transmission Date: 20130627
  Serious: Yes (Other)
  Sender: FDA-Public Use
  Company Number: PHHY2012BR075886

PATIENT
  Age: 69 Year
  Sex: Female
  Weight: 59 kg

DRUGS (4)
  1. DIOVAN HCT [Suspect]
     Indication: HYPERTENSION
     Dosage: 160mg vals  12.5 mg HCT, at night
     Route: 048
  2. DIOVAN HCT [Suspect]
     Dosage: 320 mg vals  12.5 mg HCT, at night
     Route: 048
  3. RASILEZ [Suspect]
     Indication: HYPERTENSION
     Dosage: 150 mg, QD
     Route: 048
  4. RASILEZ [Suspect]
     Dosage: 300 mg, QD
     Route: 048

REACTIONS (2)
  - Type 2 diabetes mellitus [Recovering/Resolving]
  - Hypertension [Recovered/Resolved]
